FAERS Safety Report 4918006-2 (Version None)
Quarter: 2006Q1

REPORT INFORMATION
  Report Type: 
  Country: None (occurrence: None)
  Receive Date: 20060215
  Receipt Date: 20060206
  Transmission Date: 20060701
  Serious: Yes (Other)
  Sender: FDA-Public Use
  Company Number: 2005-12-0053

PATIENT
  Age: 29 Year
  Sex: Female
  Weight: 39 kg

DRUGS (8)
  1. PEG-INTRON [Suspect]
     Indication: HEPATITIS C
     Dosage: 60 MCG QW SUBCUTANEOUS
     Route: 058
     Dates: start: 20050720, end: 20051115
  2. REBETOL [Suspect]
     Indication: HEPATITIS C
     Dosage: 600 MG ORAL
     Route: 048
     Dates: start: 20050720, end: 20051122
  3. PEGASYS [Suspect]
     Indication: HEPATITIS C
     Dosage: 180 MCG
     Dates: start: 20050525
  4. CLARITIN [Concomitant]
  5. LENDORMIN [Concomitant]
  6. DEPAS [Concomitant]
  7. LOXONIN [Concomitant]
  8. MAGNESIUM OXIDE [Concomitant]

REACTIONS (3)
  - CARDIAC FAILURE [None]
  - CARDIOMEGALY [None]
  - COUGH [None]
